FAERS Safety Report 9004022 (Version 1)
Quarter: 2013Q1

REPORT INFORMATION
  Report Type: Spontaneous
  Country: US (occurrence: US)
  Receive Date: 20130108
  Receipt Date: 20130108
  Transmission Date: 20140127
  Serious: Yes (Other)
  Sender: FDA-Public Use
  Company Number: US-009507513-1301USA002001

PATIENT
  Sex: Female

DRUGS (4)
  1. SINGULAIR [Suspect]
     Indication: PRODUCT USED FOR UNKNOWN INDICATION
  2. KLACID [Suspect]
     Indication: OBLITERATIVE BRONCHIOLITIS
  3. DEXAMETHASONE [Concomitant]
  4. ZITHROMAX [Concomitant]

REACTIONS (6)
  - Vitamin D decreased [Unknown]
  - Paraesthesia [Unknown]
  - Myalgia [Unknown]
  - Hypocalcaemia [Unknown]
  - Heart rate abnormal [Unknown]
  - Toxicity to various agents [Unknown]
